FAERS Safety Report 9228459 (Version 3)
Quarter: 2013Q2

REPORT INFORMATION
  Report Type: Spontaneous
  Country: IT (occurrence: IT)
  Receive Date: 20130412
  Receipt Date: 20130515
  Transmission Date: 20140414
  Serious: Yes (Hospitalization)
  Sender: FDA-Public Use
  Company Number: IT-ROCHE-1212126

PATIENT
  Age: 54 Year
  Sex: Female
  Weight: 68 kg

DRUGS (4)
  1. HERCEPTIN [Suspect]
     Indication: BREAST CANCER
     Route: 042
     Dates: start: 20120212, end: 20121220
  2. HERCEPTIN [Suspect]
     Route: 042
     Dates: start: 20121212, end: 20121220
  3. LAROXYL [Suspect]
     Indication: DEPRESSION
     Route: 048
     Dates: start: 20000103, end: 20121227
  4. TAXOL [Concomitant]
     Indication: BREAST CANCER
     Route: 042
     Dates: start: 20121212, end: 20121220

REACTIONS (2)
  - Respiratory failure [Recovering/Resolving]
  - Investigation abnormal [Recovering/Resolving]
